FAERS Safety Report 20858200 (Version 1)
Quarter: 2022Q2

REPORT INFORMATION
  Report Type: Spontaneous
  Country: US (occurrence: US)
  Receive Date: 20220521
  Receipt Date: 20220521
  Transmission Date: 20220721
  Serious: Yes (Hospitalization, Other)
  Sender: FDA-Public Use
  Company Number: US-BRISTOL-MYERS SQUIBB COMPANY-2022-039943

PATIENT
  Age: 63 Year
  Sex: Female
  Weight: 97.522 kg

DRUGS (13)
  1. OPDIVO [Suspect]
     Active Substance: NIVOLUMAB
     Indication: Clear cell renal cell carcinoma
     Dosage: DOSE : 480MG OPDIVO, YERVOY UNAVAILAB;     FREQ : EVERY 3 WEEKS FOR 3 DOSES
     Route: 042
     Dates: start: 202003
  2. OPDIVO [Suspect]
     Active Substance: NIVOLUMAB
     Dosage: 4TH VISIT
     Route: 065
     Dates: start: 202005
  3. OPDIVO [Suspect]
     Active Substance: NIVOLUMAB
     Route: 042
     Dates: start: 202109
  4. YERVOY [Suspect]
     Active Substance: IPILIMUMAB
     Indication: Clear cell renal cell carcinoma
     Route: 042
  5. NIVOLUMAB\RELATLIMAB-RMBW [Suspect]
     Active Substance: NIVOLUMAB\RELATLIMAB-RMBW
     Route: 042
  6. NIVOLUMAB\RELATLIMAB-RMBW [Suspect]
     Active Substance: NIVOLUMAB\RELATLIMAB-RMBW
     Route: 042
     Dates: start: 202109
  7. RANOLAZINE [Concomitant]
     Active Substance: RANOLAZINE
  8. ISOSORBIDE MONONITRATE [Concomitant]
     Active Substance: ISOSORBIDE MONONITRATE
  9. METOPROLOL SUCCINATE [Concomitant]
     Active Substance: METOPROLOL SUCCINATE
  10. LISINOPRIL [Concomitant]
     Active Substance: LISINOPRIL
  11. CLOPIDOGREL [Concomitant]
     Active Substance: CLOPIDOGREL BISULFATE
  12. EZETIMIBE [Concomitant]
     Active Substance: EZETIMIBE
  13. FUROSEMIDE [Concomitant]
     Active Substance: FUROSEMIDE
     Indication: Swelling

REACTIONS (9)
  - Petechiae [Unknown]
  - Rash macular [Unknown]
  - Skin lesion [Unknown]
  - Blister [Unknown]
  - Rash [Unknown]
  - Skin exfoliation [Unknown]
  - Onycholysis [Unknown]
  - COVID-19 pneumonia [Recovered/Resolved]
  - Intentional product use issue [Unknown]

NARRATIVE: CASE EVENT DATE: 20200501
